FAERS Safety Report 15998478 (Version 1)
Quarter: 2019Q1

REPORT INFORMATION
  Report Type: Spontaneous
  Country: US (occurrence: US)
  Receive Date: 20190223
  Receipt Date: 20190223
  Transmission Date: 20190418
  Serious: Yes (Hospitalization, Other)
  Sender: FDA-Public Use
  Company Number: US-MALLINCKRODT-T201901766

PATIENT
  Age: 91 Year
  Sex: Male
  Weight: 80 kg

DRUGS (2)
  1. FENTANYL TRANSDERMAL SYSTEM [Suspect]
     Active Substance: FENTANYL
     Indication: PAIN
     Dosage: 50 MCG, EVERY 72 HOURS
     Route: 062
     Dates: start: 201812
  2. ROXICODONE [Suspect]
     Active Substance: OXYCODONE HYDROCHLORIDE
     Indication: BACK PAIN
     Dosage: 20 MG,  EVERY 4-6 HOURS
     Route: 048
     Dates: start: 2018

REACTIONS (5)
  - Heart valve replacement [Unknown]
  - Fall [Recovering/Resolving]
  - Cardiac disorder [Unknown]
  - Joint dislocation [Recovering/Resolving]
  - Rib fracture [Recovering/Resolving]

NARRATIVE: CASE EVENT DATE: 201901
